FAERS Safety Report 6020287-1 (Version None)
Quarter: 2008Q4

REPORT INFORMATION
  Report Type: 
  Country: None (occurrence: None)
  Receive Date: 20081223
  Receipt Date: 20081223
  Transmission Date: 20090506
  Serious: Yes (Death, Hospitalization)
  Sender: FDA-Public Use
  Company Number: None

PATIENT
  Age: 57 Year
  Sex: Female

DRUGS (1)
  1. ORTHO EVRA [Suspect]
     Indication: HORMONE THERAPY
     Dosage: APPLY 1 PATCH EVERY WEEK CONTINUOUSLY (DURATION: APPROX 6 YEARS)

REACTIONS (2)
  - PAIN [None]
  - THROMBOSIS [None]
